FAERS Safety Report 5061840-1 (Version None)
Quarter: 2006Q3

REPORT INFORMATION
  Report Type: 
  Country: None (occurrence: None)
  Receive Date: 20060726
  Receipt Date: 20060718
  Transmission Date: 20061208
  Serious: Yes (Hospitalization, Other)
  Sender: FDA-Public Use
  Company Number: GB-JNJFOC-20060703628

PATIENT
  Sex: Female
  Weight: 58 kg

DRUGS (9)
  1. REMICADE [Suspect]
     Indication: RHEUMATOID ARTHRITIS
     Route: 042
  2. DOCUSATE SODIUM [Concomitant]
     Route: 065
  3. METHOTREXATE [Concomitant]
     Route: 065
  4. FOLIC ACID [Concomitant]
     Route: 065
  5. RAMIPRIL [Concomitant]
     Route: 065
  6. ESOMEPRAZOLE [Concomitant]
     Route: 065
  7. ACETAMINOPHEN W/ CODEINE [Concomitant]
     Route: 065
  8. FOSAMAX [Concomitant]
     Route: 065
  9. CALCICHEW [Concomitant]
     Route: 065

REACTIONS (1)
  - EROSIVE DUODENITIS [None]
